FAERS Safety Report 6978389-9 (Version None)
Quarter: 2010Q3

REPORT INFORMATION
  Report Type: 
  Country: None (occurrence: None)
  Receive Date: 20100913
  Receipt Date: 20100907
  Transmission Date: 20110219
  Serious: Yes (Other)
  Sender: FDA-Public Use
  Company Number: IN-BRISTOL-MYERS SQUIBB COMPANY-15273139

PATIENT
  Age: 60 Year
  Sex: Female
  Weight: 65 kg

DRUGS (4)
  1. ORENCIA [Suspect]
     Indication: RHEUMATOID ARTHRITIS
     Dosage: 2ND DOSE ON:03AUG10
     Dates: start: 20100720
  2. CAFFEINE [Concomitant]
  3. ACETAMINOPHEN [Concomitant]
  4. VITAMIN D [Concomitant]

REACTIONS (1)
  - THROMBOCYTOPENIA [None]
